FAERS Safety Report 6285667-8 (Version None)
Quarter: 2009Q3

REPORT INFORMATION
  Report Type: 
  Country: None (occurrence: None)
  Receive Date: 20090724
  Receipt Date: 20090709
  Transmission Date: 20100115
  Serious: Yes (Life-Threatening, Hospitalization)
  Sender: FDA-Public Use
  Company Number: ADE2009-0731

PATIENT
  Age: 65 Year
  Sex: Female
  Weight: 100 kg

DRUGS (5)
  1. CITALOPRAM HYDROBROMIDE [Suspect]
  2. ATENOLOL [Suspect]
  3. ENALAPRIL MALEATE [Suspect]
  4. VENLAFAXINE HYDROCHLORIDE [Suspect]
  5. AMITRIPTYLINE HCL [Suspect]

REACTIONS (20)
  - ANOXIC ENCEPHALOPATHY [None]
  - BLOOD CALCIUM INCREASED [None]
  - BLOOD LACTIC ACID INCREASED [None]
  - BLOOD PH DECREASED [None]
  - BLOOD POTASSIUM DECREASED [None]
  - BRADYCARDIA [None]
  - CALCIUM IONISED INCREASED [None]
  - COMA [None]
  - CONVULSION [None]
  - DRUG TOXICITY [None]
  - ELECTROCARDIOGRAM QRS COMPLEX PROLONGED [None]
  - ELECTROCARDIOGRAM QT PROLONGED [None]
  - ELECTROMECHANICAL DISSOCIATION [None]
  - GENERAL PHYSICAL HEALTH DETERIORATION [None]
  - HYPOTENSION [None]
  - MULTIPLE DRUG OVERDOSE [None]
  - MYDRIASIS [None]
  - PCO2 INCREASED [None]
  - RHYTHM IDIOVENTRICULAR [None]
  - VENTRICULAR TACHYCARDIA [None]
